FAERS Safety Report 18054442 (Version 2)
Quarter: 2020Q3

REPORT INFORMATION
  Report Type: Spontaneous
  Country: US (occurrence: US)
  Receive Date: 20200722
  Receipt Date: 20200728
  Transmission Date: 20201103
  Serious: Yes (Other)
  Sender: FDA-Public Use
  Company Number: US-PFIZER INC-2020223688

PATIENT
  Age: 25 Year
  Sex: Female

DRUGS (3)
  1. GELFOAM [Suspect]
     Active Substance: GELATIN\THROMBIN HUMAN
     Indication: HAEMOSTASIS
  2. THROMBIN [Suspect]
     Active Substance: THROMBIN
     Indication: HAEMOSTASIS
     Dosage: UNK
  3. SURGICEL [Suspect]
     Active Substance: CELLULOSE, OXIDIZED\DEVICE
     Indication: HAEMOSTASIS
     Dosage: UNK

REACTIONS (1)
  - Drug ineffective [Recovered/Resolved]
